FAERS Safety Report 6752968-6 (Version None)
Quarter: 2010Q2

REPORT INFORMATION
  Report Type: 
  Country: None (occurrence: None)
  Receive Date: 20100603
  Receipt Date: 20100525
  Transmission Date: 20101027
  Serious: Yes (Hospitalization, Disabling)
  Sender: FDA-Public Use
  Company Number: CH-BAYER-201026631GPV

PATIENT
  Age: 38 Year
  Sex: Female

DRUGS (1)
  1. YASMIN [Suspect]
     Indication: DRUG USE FOR UNKNOWN INDICATION
     Dosage: SEVERAL YEARS

REACTIONS (2)
  - HEARING IMPAIRED [None]
  - PULMONARY EMBOLISM [None]
